FAERS Safety Report 6854433-4 (Version None)
Quarter: 2010Q3

REPORT INFORMATION
  Report Type: 
  Country: None (occurrence: None)
  Receive Date: 20100717
  Receipt Date: 20080107
  Transmission Date: 20110219
  Serious: No
  Sender: FDA-Public Use
  Company Number: US-PFIZER INC-2008001738

PATIENT
  Sex: Female
  Weight: 70.31 kg

DRUGS (2)
  1. CHANTIX [Suspect]
     Indication: SMOKING CESSATION THERAPY
     Dates: start: 20071101
  2. DARIFENACIN HYDROBROMIDE [Interacting]
     Indication: BLADDER SPASM

REACTIONS (2)
  - BLADDER SPASM [None]
  - DRUG INTERACTION [None]
